FAERS Safety Report 8505042-2 (Version None)
Quarter: 2012Q2

REPORT INFORMATION
  Report Type: 
  Country: None (occurrence: None)
  Receive Date: 20120629
  Receipt Date: 20120622
  Transmission Date: 20120825
  Serious: Yes (Other)
  Sender: FDA-Public Use
  Company Number: 2012SP019784

PATIENT
  Age: 33 Year
  Sex: Female
  Weight: 60.782 kg

DRUGS (13)
  1. ZOFRAN [Concomitant]
  2. PEGASYS [Suspect]
     Indication: HEPATITIS C
     Dosage: 180 MCG;QW;SC
     Route: 058
     Dates: start: 20111028, end: 20120330
  3. VICTRELIS [Suspect]
     Indication: HEPATITIS C
     Dosage: 800 MG;TID;PO
     Route: 048
     Dates: start: 20111125, end: 20120330
  4. VALIUM [Concomitant]
  5. LYRICA [Concomitant]
  6. SYNTHROID [Concomitant]
  7. NEUPOGEN [Concomitant]
  8. VICODIN [Concomitant]
  9. RIBAVIRIN [Suspect]
     Indication: HEPATITIS C
     Dosage: 1000 MG;PO
     Route: 048
     Dates: start: 20111028, end: 20120126
  10. KLONOPIN [Concomitant]
  11. PROZAC [Concomitant]
  12. ARANESP [Concomitant]
  13. CYMBALTA [Concomitant]

REACTIONS (6)
  - NEUTROPENIA [None]
  - ANAEMIA [None]
  - FATIGUE [None]
  - PAIN [None]
  - DEPRESSION [None]
  - HEADACHE [None]
